FAERS Safety Report 4663819-8 (Version None)
Quarter: 2005Q2

REPORT INFORMATION
  Report Type: 
  Country: None (occurrence: None)
  Receive Date: 20050516
  Receipt Date: 20040504
  Transmission Date: 20051028
  Serious: Yes (Death)
  Sender: FDA-Public Use
  Company Number: RS005169-USA

PATIENT
  Age: 62 Year
  Sex: Female

DRUGS (11)
  1. ACIPHEX [Suspect]
     Indication: GASTROOESOPHAGEAL REFLUX DISEASE
     Dosage: 20 MG, ORAL
     Route: 048
  2. LANTOS INSULIN [Concomitant]
  3. ACTOSE [Concomitant]
  4. METOPROLOL [Concomitant]
  5. TRICOR [Concomitant]
  6. SYNTHROID [Concomitant]
  7. PREMARIN [Concomitant]
  8. ALLEGRA [Concomitant]
  9. PAXIL [Concomitant]
  10. METHOTREXATE [Concomitant]
  11. HUMALOG INSULIN (INSULIN LISPRO) [Concomitant]

REACTIONS (1)
  - CARDIAC DISORDER [None]
